FAERS Safety Report 4618296-X (Version None)
Quarter: 2005Q1

REPORT INFORMATION
  Report Type: 
  Country: None (occurrence: None)
  Receive Date: 20050323
  Receipt Date: 20050210
  Transmission Date: 20050727
  Serious: Yes (Hospitalization)
  Sender: FDA-Public Use
  Company Number: 8009465

PATIENT
  Age: 84 Year
  Sex: Male
  Weight: 75 kg

DRUGS (7)
  1. KEPPRA [Suspect]
     Indication: EPILEPSY
     Dosage: 1 G/D PO
     Route: 048
     Dates: start: 20040705, end: 20040709
  2. PHENYTOIN [Concomitant]
  3. GELOMYRTOL FORTE [Concomitant]
  4. SYMBICORT [Concomitant]
  5. AMLODIPINE [Concomitant]
  6. ISOSORBIDE DINITRATE [Concomitant]
  7. TORSEMIDE [Concomitant]

REACTIONS (2)
  - AGITATION [None]
  - DISORIENTATION [None]
